FAERS Safety Report 20075779 (Version 1)
Quarter: 2021Q4

REPORT INFORMATION
  Report Type: Spontaneous
  Country: US (occurrence: US)
  Receive Date: 20211116
  Receipt Date: 20211116
  Transmission Date: 20220303
  Serious: No
  Sender: FDA-Public Use
  Company Number: US-NOVOPROD-834787

PATIENT
  Age: 83 Year
  Sex: Male

DRUGS (3)
  1. TRESIBA [Suspect]
     Active Substance: INSULIN DEGLUDEC
     Indication: Type 2 diabetes mellitus
     Dosage: 60 IU, QD
     Route: 058
     Dates: start: 2019
  2. TRESIBA [Suspect]
     Active Substance: INSULIN DEGLUDEC
     Dosage: 60 IU, QD (BACK TO 60 UNITS DAILY)
     Route: 058
     Dates: start: 2019
  3. TRESIBA [Suspect]
     Active Substance: INSULIN DEGLUDEC
     Dosage: DECREASED TO 36 UNITS DAILY
     Route: 058
     Dates: start: 2019

REACTIONS (3)
  - Hypoacusis [Not Recovered/Not Resolved]
  - Blood glucose increased [Recovered/Resolved]
  - Blood glucose decreased [Recovered/Resolved]

NARRATIVE: CASE EVENT DATE: 20210501
